FAERS Safety Report 14271800 (Version 3)
Quarter: 2018Q1

REPORT INFORMATION
  Report Type: Spontaneous
  Country: US (occurrence: US)
  Receive Date: 20171212
  Receipt Date: 20180131
  Transmission Date: 20180508
  Serious: No
  Sender: FDA-Public Use
  Company Number: US-PFIZER INC-2017530985

PATIENT
  Age: 76 Year
  Sex: Female
  Weight: 48.53 kg

DRUGS (1)
  1. XELJANZ XR [Suspect]
     Active Substance: TOFACITINIB CITRATE
     Indication: RHEUMATOID ARTHRITIS
     Dosage: 11 MG, DAILY
     Route: 048

REACTIONS (4)
  - Cough [Recovered/Resolved]
  - Chronic obstructive pulmonary disease [Unknown]
  - Dizziness [Recovered/Resolved]
  - Dyspnoea [Unknown]
